FAERS Safety Report 15826577 (Version 1)
Quarter: 2019Q1

REPORT INFORMATION
  Report Type: Spontaneous
  Country: US (occurrence: US)
  Receive Date: 20190115
  Receipt Date: 20190115
  Transmission Date: 20190417
  Serious: Yes (Hospitalization)
  Sender: FDA-Public Use
  Company Number: None

PATIENT
  Age: 59 Year
  Sex: Female

DRUGS (11)
  1. HUMIRA [Suspect]
     Active Substance: ADALIMUMAB
     Indication: PSORIASIS
     Dosage: ?          OTHER FREQUENCY:Q14 DAYS;?
     Route: 058
     Dates: start: 20160902
  2. KLONOPIN [Concomitant]
     Active Substance: CLONAZEPAM
  3. ARAVA [Concomitant]
     Active Substance: LEFLUNOMIDE
  4. METFORMIN [Concomitant]
     Active Substance: METFORMIN HYDROCHLORIDE
  5. SIMVASTATIN. [Concomitant]
     Active Substance: SIMVASTATIN
  6. CRANBERRY. [Concomitant]
     Active Substance: CRANBERRY
  7. VITAMIN D3 [Concomitant]
     Active Substance: CHOLECALCIFEROL
  8. HYDROXYCHLOR [Concomitant]
     Active Substance: HYDROXYCHLOROQUINE
  9. VALSARTAN. [Concomitant]
     Active Substance: VALSARTAN
  10. ASPIRIN. [Concomitant]
     Active Substance: ASPIRIN
  11. CITALOPRAM [Concomitant]
     Active Substance: CITALOPRAM HYDROBROMIDE

REACTIONS (3)
  - Injection site swelling [None]
  - Rash generalised [None]
  - Pruritus generalised [None]

NARRATIVE: CASE EVENT DATE: 20181214
